FAERS Safety Report 15248143 (Version 1)
Quarter: 2018Q3

REPORT INFORMATION
  Report Type: Spontaneous
  Country: US (occurrence: US)
  Receive Date: 20180807
  Receipt Date: 20180807
  Transmission Date: 20181010
  Serious: Yes (Life-Threatening, Hospitalization, Other)
  Sender: FDA-Public Use
  Company Number: US-TORRENT-00006714

PATIENT
  Age: 61 Year
  Sex: Female

DRUGS (1)
  1. MOXIFLOXACIN. [Suspect]
     Active Substance: MOXIFLOXACIN
     Indication: INFLUENZA LIKE ILLNESS
     Dosage: UNK

REACTIONS (10)
  - Stevens-Johnson syndrome [Recovering/Resolving]
  - Multiple organ dysfunction syndrome [Unknown]
  - Tracheal haemorrhage [Unknown]
  - Toxic epidermal necrolysis [Recovering/Resolving]
  - Hepatic enzyme increased [Unknown]
  - Amylase increased [Unknown]
  - Haemoptysis [Unknown]
  - Bronchial ulceration [Unknown]
  - Renal failure [Unknown]
  - Stress cardiomyopathy [Recovering/Resolving]
